FAERS Safety Report 11281072 (Version 8)
Quarter: 2015Q3

REPORT INFORMATION
  Report Type: Spontaneous
  Country: US (occurrence: US)
  Receive Date: 20150717
  Receipt Date: 20150915
  Transmission Date: 20151125
  Serious: Yes (Hospitalization)
  Sender: FDA-Public Use
  Company Number: US-UNITED THERAPEUTICS-UNT-2015-008508

PATIENT
  Age: 57 Year
  Sex: Female
  Weight: 84.35 kg

DRUGS (5)
  1. REMODULIN [Suspect]
     Active Substance: TREPROSTINIL
     Indication: PULMONARY HYPERTENSION
     Dosage: 0.041 ?G/KG, CONTINUING
     Route: 041
     Dates: start: 20130626
  2. LETAIRIS [Suspect]
     Active Substance: AMBRISENTAN
     Indication: PRODUCT USED FOR UNKNOWN INDICATION
     Dosage: 10 MG, QD
     Dates: start: 20150430
  3. LETAIRIS [Suspect]
     Active Substance: AMBRISENTAN
     Dosage: 10 MG, QD
  4. REMODULIN [Suspect]
     Active Substance: TREPROSTINIL
     Dosage: 0.041 ?G/KG, CONTINUING
     Route: 058
     Dates: start: 20150708
  5. REMODULIN [Suspect]
     Active Substance: TREPROSTINIL
     Dosage: 0.041 ?G/KG, CONTINUING
     Route: 058

REACTIONS (16)
  - Infusion site pustule [Unknown]
  - Infusion site induration [Unknown]
  - Drug dose omission [Unknown]
  - Infusion site pain [Unknown]
  - Infusion site discolouration [Unknown]
  - Oedema [Unknown]
  - Infusion site haemorrhage [Unknown]
  - Device breakage [Unknown]
  - Generalised oedema [Unknown]
  - Weight increased [Unknown]
  - Infusion site infection [Unknown]
  - Device dislocation [Unknown]
  - Chills [Unknown]
  - Infusion site oedema [Unknown]
  - Infusion site erythema [Unknown]
  - Infusion site warmth [Unknown]

NARRATIVE: CASE EVENT DATE: 201507
